FAERS Safety Report 17838028 (Version 2)
Quarter: 2020Q3

REPORT INFORMATION
  Report Type: Spontaneous
  Country: US (occurrence: US)
  Receive Date: 20200528
  Receipt Date: 20200727
  Transmission Date: 20201103
  Serious: No
  Sender: FDA-Public Use
  Company Number: NVSC2020US147755

PATIENT
  Sex: Female

DRUGS (1)
  1. LATANOPROST 0.005% W/V EYE DROPS, SOLUTION [Suspect]
     Active Substance: LATANOPROST
     Indication: PRODUCT USED FOR UNKNOWN INDICATION
     Dosage: 2 DRP, QD; 1 DROP EACH EYE 1 X DAILY
     Route: 065

REACTIONS (4)
  - Product deposit [Unknown]
  - Ocular discomfort [Unknown]
  - Product physical issue [Unknown]
  - Eye pain [Unknown]
